FAERS Safety Report 8347043-3 (Version None)
Quarter: 2012Q2

REPORT INFORMATION
  Report Type: 
  Country: None (occurrence: None)
  Receive Date: 20120509
  Receipt Date: 20120430
  Transmission Date: 20120825
  Serious: Yes (Death)
  Sender: FDA-Public Use
  Company Number: GB-JNJFOC-20120103140

PATIENT
  Sex: Male
  Weight: 112 kg

DRUGS (11)
  1. REMICADE [Suspect]
     Indication: RHEUMATOID ARTHRITIS
     Route: 042
     Dates: start: 20030715, end: 20031015
  2. FLUTICASONE PROPIONATE/SALMETEROL [Concomitant]
  3. DULOXETINE HYDROCHLORIDE [Concomitant]
  4. OMEPRAZOLE [Concomitant]
  5. DUTASTERIDE [Concomitant]
  6. PREDNISONE [Concomitant]
  7. METHOTREXATE [Concomitant]
  8. FOLIC ACID [Concomitant]
  9. OTHER BIOLOGICS [Concomitant]
     Indication: RHEUMATOID ARTHRITIS
  10. FUROSEMIDE [Concomitant]
  11. CYCLIZINE [Concomitant]

REACTIONS (1)
  - PANCREATIC CARCINOMA [None]
